FAERS Safety Report 9775927 (Version 1)
Quarter: 2013Q4

REPORT INFORMATION
  Report Type: Spontaneous
  Country: IT (occurrence: None)
  Receive Date: 20131219
  Receipt Date: 20131219
  Transmission Date: 20140711
  Serious: Yes (Other)
  Sender: FDA-Public Use
  Company Number: 2013AP010403

PATIENT
  Age: 76 Year
  Sex: Female

DRUGS (4)
  1. CLARITHROMYCIN (CLARITHROMYCIN) [Suspect]
     Indication: SIALOADENITIS
     Route: 048
     Dates: start: 20131004, end: 20131009
  2. DIBASE (COLECALCIFEROL) [Concomitant]
  3. BONVIVA [Suspect]
  4. DELTACORTENE (PREDNISONE) [Suspect]

REACTIONS (2)
  - Hypersensitivity [None]
  - Pruritus [None]
